FAERS Safety Report 4288123-1 (Version None)
Quarter: 2004Q1

REPORT INFORMATION
  Report Type: 
  Country: None (occurrence: None)
  Receive Date: 20040209
  Receipt Date: 20030821
  Transmission Date: 20041129
  Serious: No
  Sender: FDA-Public Use
  Company Number: US-GLAXOSMITHKLINE-A0422935A

PATIENT
  Age: 57 Year
  Sex: Male

DRUGS (2)
  1. PAXIL [Suspect]
     Dosage: 25MG TWICE PER DAY
     Route: 048
     Dates: end: 20030816
  2. NONE [Concomitant]

REACTIONS (3)
  - DIZZINESS [None]
  - DRUG WITHDRAWAL SYNDROME [None]
  - NAUSEA [None]
